FAERS Safety Report 22967429 (Version 3)
Quarter: 2023Q4

REPORT INFORMATION
  Report Type: Spontaneous
  Country: US (occurrence: US)
  Receive Date: 20230921
  Receipt Date: 20231010
  Transmission Date: 20240110
  Serious: No
  Sender: FDA-Public Use
  Company Number: US-PFIZER INC-2018390907

PATIENT
  Age: 38 Year
  Sex: Female
  Weight: 138.35 kg

DRUGS (3)
  1. PRISTIQ EXTENDED-RELEASE [Suspect]
     Active Substance: DESVENLAFAXINE SUCCINATE
     Indication: Depression
     Dosage: 150 MG, 1X/DAY (DAILY OF THE 50 AND 100)
     Route: 048
  2. PRISTIQ EXTENDED-RELEASE [Suspect]
     Active Substance: DESVENLAFAXINE SUCCINATE
     Dosage: 100 MG, ONE TIME A DAY
  3. HYDROXYZINE [Concomitant]
     Active Substance: HYDROXYZINE HYDROCHLORIDE
     Indication: Anxiety
     Dosage: UNK

REACTIONS (4)
  - Wrong technique in product usage process [Unknown]
  - Anger [Unknown]
  - Depressed mood [Unknown]
  - Irritability [Unknown]
